FAERS Safety Report 7935373 (Version 2)
Quarter: 2012Q4

REPORT INFORMATION
  Report Type: 
  Country: US (occurrence: US)
  Receive Date: 20110509
  Receipt Date: 20121029
  Transmission Date: 20130627
  Serious: Yes (Hospitalization, Other)
  Sender: FDA-Public Use
  Company Number: US-ROCHE-749880

PATIENT
  Age: 18 None
  Sex: Male
  Weight: 54.4 kg

DRUGS (2)
  1. ACCUTANE [Suspect]
     Indication: ACNE
     Route: 065
     Dates: start: 1999, end: 2000
  2. ACCUTANE [Suspect]
     Route: 048
     Dates: start: 20010616, end: 200111

REACTIONS (14)
  - Thrombophlebitis superficial [Unknown]
  - Crohn^s disease [Unknown]
  - Colitis ulcerative [Unknown]
  - Hepatic enzyme increased [Unknown]
  - Inflammatory bowel disease [Unknown]
  - Gastrointestinal injury [Unknown]
  - Depression [Unknown]
  - Suicidal ideation [Unknown]
  - Irritable bowel syndrome [Unknown]
  - Dry skin [Unknown]
  - Lip dry [Unknown]
  - Chapped lips [Unknown]
  - Skin exfoliation [Unknown]
  - Blood triglycerides increased [Unknown]
